FAERS Safety Report 18119578 (Version 1)
Quarter: 2020Q3

REPORT INFORMATION
  Report Type: Spontaneous
  Country: US (occurrence: US)
  Receive Date: 20200806
  Receipt Date: 20200806
  Transmission Date: 20201103
  Serious: Yes (Death)
  Sender: FDA-Public Use
  Company Number: None

PATIENT
  Age: 3 Year
  Sex: Female

DRUGS (6)
  1. TEMOZOLOMIDE. [Suspect]
     Active Substance: TEMOZOLOMIDE
     Indication: NEOPLASM MALIGNANT
     Route: 048
     Dates: start: 20190814
  2. RAPAMMUNE 1 MG/ML [Concomitant]
  3. NEUPOGEN [Suspect]
     Active Substance: FILGRASTIM
  4. TEMOZOLOMIDE 100 MG [Concomitant]
     Active Substance: TEMOZOLOMIDE
  5. CYCLOSPHOSHAMIDE 10MG/ML [Concomitant]
  6. ETOPOSIDE 20MGLML [Suspect]
     Active Substance: ETOPOSIDE
     Indication: NEOPLASM MALIGNANT
     Route: 048
     Dates: start: 20190719

REACTIONS (1)
  - Death [None]

NARRATIVE: CASE EVENT DATE: 20200806
